FAERS Safety Report 8810268 (Version 1)
Quarter: 2012Q4

REPORT INFORMATION
  Report Type: 
  Country: US (occurrence: US)
  Receive Date: 20120926
  Receipt Date: 20120926
  Transmission Date: 20130627
  Serious: No
  Sender: FDA-Public Use
  Company Number: US-009507513-1208USA011759

PATIENT
  Sex: Female

DRUGS (4)
  1. PEG-INTRON [Suspect]
     Indication: HEPATITIS C
     Dosage: dose was held for two weeks
     Dates: start: 20120629, end: 20120809
  2. PEG-INTRON [Suspect]
     Dosage: Dose was started with reduced dose.
  3. REBETOL [Suspect]
     Indication: HEPATITIS C
     Dosage: UNK
     Dates: start: 20120629, end: 20120809
  4. REBETOL [Suspect]
     Dosage: UNK

REACTIONS (8)
  - White blood cell count decreased [Unknown]
  - Anaemia [Unknown]
  - Pain [Unknown]
  - Fatigue [Unknown]
  - Fatigue [Unknown]
  - Influenza like illness [Unknown]
  - Mood altered [Unknown]
  - Emotional disorder [Unknown]
